FAERS Safety Report 6132946-0 (Version None)
Quarter: 2009Q1

REPORT INFORMATION
  Report Type: 
  Country: None (occurrence: None)
  Receive Date: 20090326
  Receipt Date: 20090319
  Transmission Date: 20090719
  Serious: Yes (Hospitalization, Disabling, Other)
  Sender: FDA-Public Use
  Company Number: PHEH2004US03587

PATIENT
  Sex: Female

DRUGS (4)
  1. ZOMETA [Suspect]
     Indication: BREAST CANCER
     Dosage: 4 MG 1 TIME PER MONTH
     Route: 042
     Dates: start: 20000101, end: 20030101
  2. LIPITOR [Concomitant]
     Dosage: UNK
  3. ACCUPRIL [Concomitant]
  4. EFFEXOR [Concomitant]
     Dosage: UNK

REACTIONS (6)
  - BONE DISORDER [None]
  - GINGIVITIS [None]
  - INFECTION [None]
  - OSTEONECROSIS [None]
  - PAIN [None]
  - SWELLING [None]
